FAERS Safety Report 5119607-1 (Version None)
Quarter: 2006Q4

REPORT INFORMATION
  Report Type: 
  Country: None (occurrence: None)
  Receive Date: 20061003
  Receipt Date: 20060929
  Transmission Date: 20070319
  Serious: Yes (Hospitalization)
  Sender: FDA-Public Use
  Company Number: AR-GLAXOSMITHKLINE-A0622156A

PATIENT
  Age: 2 Year
  Sex: Female

DRUGS (1)
  1. CEFUROXIME AXETIL [Suspect]
     Indication: SCARLET FEVER
     Dosage: 40MGKD UNKNOWN
     Route: 048
     Dates: start: 20060825, end: 20060827

REACTIONS (3)
  - PALLOR [None]
  - SALIVARY HYPERSECRETION [None]
  - TRISMUS [None]
